FAERS Safety Report 5270198-4 (Version None)
Quarter: 2007Q1

REPORT INFORMATION
  Report Type: 
  Country: None (occurrence: None)
  Receive Date: 20070320
  Receipt Date: 20070308
  Transmission Date: 20070707
  Serious: Yes (Other)
  Sender: FDA-Public Use
  Company Number: US-SANOFI-SYNTHELABO-A03200701915

PATIENT
  Age: 65 Year
  Sex: Male

DRUGS (4)
  1. HYDROXYCHLOROQUINE SULFATE [Suspect]
     Indication: SYSTEMIC LUPUS ERYTHEMATOSUS
     Route: 048
  2. FLUOXETINE [Concomitant]
     Dosage: UNK
     Route: 065
  3. ASPIRIN [Concomitant]
     Dosage: UNK
     Route: 048
  4. PREDNISONE [Concomitant]
     Dosage: UNK
     Route: 065

REACTIONS (3)
  - MYELODYSPLASTIC SYNDROME [None]
  - PANCYTOPENIA [None]
  - REFRACTORY ANAEMIA [None]
